FAERS Safety Report 8325032-2 (Version None)
Quarter: 2012Q2

REPORT INFORMATION
  Report Type: 
  Country: None (occurrence: None)
  Receive Date: 20120501
  Receipt Date: 20100316
  Transmission Date: 20120825
  Serious: No
  Sender: FDA-Public Use
  Company Number: US-TEVA-2010001551

PATIENT
  Sex: Male

DRUGS (2)
  1. NUVIGIL [Suspect]
     Indication: MULTIPLE SCLEROSIS
     Dosage: 250 MILLIGRAM;
     Route: 048
     Dates: start: 20100316
  2. NUVIGIL [Suspect]
     Indication: FATIGUE

REACTIONS (2)
  - TONGUE DISORDER [None]
  - HYPOAESTHESIA ORAL [None]
